FAERS Safety Report 4896095-1 (Version None)
Quarter: 2005Q4

REPORT INFORMATION
  Report Type: 
  Country: None (occurrence: None)
  Receive Date: 20051220
  Receipt Date: 20050713
  Transmission Date: 20060501
  Serious: Yes (Other)
  Sender: FDA-Public Use
  Company Number: US142463

PATIENT
  Sex: Female

DRUGS (2)
  1. ENBREL [Suspect]
     Indication: RHEUMATOID ARTHRITIS
     Dates: start: 20021101, end: 20040112
  2. CELECOXIB [Concomitant]

REACTIONS (4)
  - BREAST CANCER [None]
  - IMMUNE SYSTEM DISORDER [None]
  - PARAESTHESIA [None]
  - SPLENOMEGALY [None]
